FAERS Safety Report 24108321 (Version 1)
Quarter: 2024Q3

REPORT INFORMATION
  Report Type: Report from Study
  Country: US (occurrence: None)
  Receive Date: 20240718
  Receipt Date: 20240718
  Transmission Date: 20241017
  Serious: Yes (Other)
  Sender: ASTRAZENECA
  Company Number: 2020SE25400

PATIENT
  Sex: Female

DRUGS (4)
  1. TAGRISSO [Suspect]
     Active Substance: OSIMERTINIB
     Indication: Lung carcinoma cell type unspecified stage I
     Route: 048
  2. PLAQUENIL [Concomitant]
     Active Substance: HYDROXYCHLOROQUINE SULFATE
  3. LORATADINE [Concomitant]
     Active Substance: LORATADINE
  4. MELOXICAM [Concomitant]
     Active Substance: MELOXICAM

REACTIONS (3)
  - Blindness [Unknown]
  - Dizziness [Unknown]
  - Dysstasia [Unknown]
